FAERS Safety Report 13344403 (Version 1)
Quarter: 2017Q1

REPORT INFORMATION
  Report Type: Report from Study
  Country: None (occurrence: CA)
  Receive Date: 20170317
  Receipt Date: 20170317
  Transmission Date: 20170428
  Serious: Yes (Other)
  Sender: FDA-Public Use
  Company Number: CA-ABBVIE-16K-028-1731244-00

PATIENT
  Sex: Male

DRUGS (1)
  1. HUMIRA [Suspect]
     Active Substance: ADALIMUMAB
     Indication: ANKYLOSING SPONDYLITIS
     Route: 058
     Dates: start: 20090224

REACTIONS (4)
  - Procedural hypertension [Recovered/Resolved]
  - Furuncle [Not Recovered/Not Resolved]
  - Tooth fracture [Not Recovered/Not Resolved]
  - Unwanted awareness during anaesthesia [Unknown]
